FAERS Safety Report 12920285 (Version 1)
Quarter: 2016Q4

REPORT INFORMATION
  Report Type: Spontaneous
  Country: CA (occurrence: US)
  Receive Date: 20161105
  Receipt Date: 20161105
  Transmission Date: 20170207
  Serious: No
  Sender: FDA-Public Use
  Company Number: None

PATIENT
  Age: 36 Year
  Sex: Female
  Weight: 49.5 kg

DRUGS (2)
  1. PRE-NATAL VITAMINS (GENERIC) [Concomitant]
  2. OVIDREL [Suspect]
     Active Substance: CHORIOGONADOTROPIN ALFA
     Indication: INFERTILITY
     Dosage: ?          QUANTITY:1 INJECTION(S);?
     Route: 058
     Dates: start: 20161104

REACTIONS (4)
  - Ear discomfort [None]
  - Dizziness [None]
  - Vision blurred [None]
  - Presyncope [None]

NARRATIVE: CASE EVENT DATE: 20161104
